FAERS Safety Report 14057004 (Version 4)
Quarter: 2017Q4

REPORT INFORMATION
  Report Type: Spontaneous
  Country: US (occurrence: US)
  Receive Date: 20171006
  Receipt Date: 20171128
  Transmission Date: 20180321
  Serious: Yes (Other)
  Sender: FDA-Public Use
  Company Number: US-LUNDBECK-DKLU2037932

PATIENT
  Age: 67 Year
  Sex: Female

DRUGS (4)
  1. NORTHERA [Suspect]
     Active Substance: DROXIDOPA
     Indication: PARKINSON^S DISEASE
     Route: 048
     Dates: start: 20170918
  2. NORTHERA [Suspect]
     Active Substance: DROXIDOPA
     Route: 048
  3. NORTHERA [Suspect]
     Active Substance: DROXIDOPA
     Indication: ORTHOSTATIC HYPOTENSION
     Dosage: SCHEDULE C (TITRATING)
     Route: 065
     Dates: start: 20170919
  4. NORTHERA [Suspect]
     Active Substance: DROXIDOPA
     Dosage: TITRATE UP TO 600 MG TID
     Route: 048
     Dates: start: 20170918, end: 20171004

REACTIONS (5)
  - Vomiting [Recovered/Resolved]
  - Endometrial cancer stage III [Unknown]
  - Headache [Recovered/Resolved]
  - Retching [Recovered/Resolved]
  - Nausea [Recovered/Resolved]

NARRATIVE: CASE EVENT DATE: 20170919
